FAERS Safety Report 10665832 (Version 2)
Quarter: 2015Q2

REPORT INFORMATION
  Report Type: Report from Study
  Country: TR (occurrence: TR)
  Receive Date: 20141219
  Receipt Date: 20150528
  Transmission Date: 20150821
  Serious: Yes (Hospitalization, Congenital Anomaly, Other)
  Sender: FDA-Public Use
  Company Number: TR-NOVOPROD-432572

PATIENT
  Sex: Male
  Weight: 3.6 kg

DRUGS (5)
  1. PROTINUM [Concomitant]
     Indication: GASTRITIS
     Dosage: 1X1
     Route: 064
     Dates: start: 201404, end: 20141013
  2. INSULIN DETEMIR FLEXPEN [Suspect]
     Active Substance: INSULIN DETEMIR
     Indication: TYPE 2 DIABETES MELLITUS
     Dosage: 6 U, QD
     Route: 064
     Dates: start: 20140410, end: 20141013
  3. NOVORAPID [Suspect]
     Active Substance: INSULIN ASPART
     Indication: TYPE 2 DIABETES MELLITUS
     Dosage: 8 U, QD
     Route: 064
     Dates: start: 20140410, end: 20141015
  4. NOVORAPID [Suspect]
     Active Substance: INSULIN ASPART
     Dosage: 8 U, QD
     Route: 063
  5. ALFAMET [Concomitant]
     Active Substance: METHYLDOPA
     Indication: HYPERTENSION
     Dosage: 1X1
     Route: 064
     Dates: start: 201403, end: 20141013

REACTIONS (6)
  - Meningitis neonatal [Recovered/Resolved]
  - Cardiac septal defect [Unknown]
  - Urinary tract infection neonatal [Recovered/Resolved]
  - Foetal exposure during pregnancy [Recovered/Resolved]
  - Congenital hydronephrosis [Unknown]
  - Jaundice neonatal [Recovered/Resolved]

NARRATIVE: CASE EVENT DATE: 20140410
